FAERS Safety Report 4616653-9 (Version None)
Quarter: 2005Q1

REPORT INFORMATION
  Report Type: 
  Country: None (occurrence: None)
  Receive Date: 20050318
  Receipt Date: 20050302
  Transmission Date: 20050727
  Serious: Yes (Hospitalization)
  Sender: FDA-Public Use
  Company Number: 2005BI004995

PATIENT
  Age: 56 Year
  Sex: Female
  Weight: 65.7716 kg

DRUGS (4)
  1. AVONEX [Suspect]
     Indication: MULTIPLE SCLEROSIS
     Dosage: 30 UG; QW; IM
     Route: 030
     Dates: start: 19980101, end: 20040101
  2. PROZAC [Concomitant]
  3. CALCIUM GLUCONATE [Concomitant]
  4. M.V.I. [Concomitant]

REACTIONS (12)
  - ARTHRALGIA [None]
  - ASTHENIA [None]
  - CYSTITIS [None]
  - FALL [None]
  - FOOT FRACTURE [None]
  - FUNGAL INFECTION [None]
  - INSOMNIA [None]
  - LOWER LIMB FRACTURE [None]
  - MENOPAUSE [None]
  - SKIN DISCOLOURATION [None]
  - UPPER LIMB FRACTURE [None]
  - URINARY INCONTINENCE [None]
